FAERS Safety Report 24136041 (Version 1)
Quarter: 2024Q3

REPORT INFORMATION
  Report Type: Spontaneous
  Country: IT (occurrence: IT)
  Receive Date: 20240725
  Receipt Date: 20240725
  Transmission Date: 20241016
  Serious: Yes (Life-Threatening, Other)
  Sender: PFIZER
  Company Number: None

PATIENT
  Age: 7 Day
  Sex: Female
  Weight: 0.62 kg

DRUGS (1)
  1. ALPROSTADIL [Suspect]
     Active Substance: ALPROSTADIL
     Indication: Heart disease congenital
     Dosage: 0.04 MG/KG
     Route: 042
     Dates: start: 20240520

REACTIONS (2)
  - Neonatal hypotension [Recovering/Resolving]
  - Fever neonatal [Recovered/Resolved]

NARRATIVE: CASE EVENT DATE: 20240520
